FAERS Safety Report 6319898-5 (Version None)
Quarter: 2009Q3

REPORT INFORMATION
  Report Type: 
  Country: None (occurrence: None)
  Receive Date: 20090822
  Receipt Date: 20081007
  Transmission Date: 20100115
  Serious: No
  Sender: FDA-Public Use
  Company Number: US-ABBOTT-08P-163-0480390-00

PATIENT
  Sex: Male
  Weight: 108.96 kg

DRUGS (7)
  1. NIASPAN [Suspect]
     Indication: BLOOD CHOLESTEROL INCREASED
     Route: 048
     Dates: start: 20080819
  2. LISINOPRIL [Concomitant]
     Indication: HYPERTENSION
     Route: 048
  3. PRAVASTATIN [Concomitant]
     Indication: DRUG USE FOR UNKNOWN INDICATION
     Route: 048
  4. METOPROLOL [Concomitant]
     Indication: HYPERTENSION
     Route: 048
  5. RANITIDINE [Concomitant]
     Indication: DRUG USE FOR UNKNOWN INDICATION
     Route: 048
  6. ASPIRIN [Concomitant]
     Indication: DRUG USE FOR UNKNOWN INDICATION
     Route: 048
  7. MULTIVITAMIN [Concomitant]
     Indication: MACULAR DEGENERATION
     Route: 048

REACTIONS (1)
  - BURNING SENSATION [None]
